FAERS Safety Report 21465842 (Version 2)
Quarter: 2022Q4

REPORT INFORMATION
  Report Type: Spontaneous
  Country: US (occurrence: US)
  Receive Date: 20221017
  Receipt Date: 20221028
  Transmission Date: 20230113
  Serious: Yes (Life-Threatening, Other)
  Sender: FDA-Public Use
  Company Number: US-PFIZER INC-PV202200077920

PATIENT
  Age: 62 Year
  Sex: Male

DRUGS (8)
  1. METHYLPREDNISOLONE [Suspect]
     Active Substance: METHYLPREDNISOLONE
     Indication: Bronchitis
     Dosage: 1 MG/KG
  2. METHYLPREDNISOLONE [Suspect]
     Active Substance: METHYLPREDNISOLONE
     Indication: Obstruction
  3. MAGNESIUM SULFATE [Suspect]
     Active Substance: MAGNESIUM SULFATE
     Indication: Bronchitis
     Dosage: UNK
  4. MAGNESIUM SULFATE [Suspect]
     Active Substance: MAGNESIUM SULFATE
     Indication: Obstruction
  5. ALBUTEROL [Suspect]
     Active Substance: ALBUTEROL
     Indication: Bronchitis
     Dosage: UNK
  6. ALBUTEROL [Suspect]
     Active Substance: ALBUTEROL
     Indication: Obstruction
  7. IPRATROPIUM [Suspect]
     Active Substance: IPRATROPIUM
     Indication: Bronchitis
     Dosage: UNK
  8. IPRATROPIUM [Suspect]
     Active Substance: IPRATROPIUM
     Indication: Obstruction

REACTIONS (3)
  - Respiratory acidosis [Unknown]
  - Respiratory fatigue [Unknown]
  - Off label use [Unknown]
